FAERS Safety Report 24265132 (Version 1)
Quarter: 2024Q3

REPORT INFORMATION
  Report Type: Spontaneous
  Country: US (occurrence: US)
  Receive Date: 20240829
  Receipt Date: 20240829
  Transmission Date: 20241016
  Serious: No
  Sender: MERZ
  Company Number: US-Merz Pharmaceuticals GmbH-2024070000015

PATIENT
  Sex: Female

DRUGS (1)
  1. XEOMIN [Suspect]
     Active Substance: INCOBOTULINUMTOXINA
     Indication: Product used for unknown indication

REACTIONS (6)
  - Injection site nodule [Unknown]
  - Injection site induration [Unknown]
  - Tenderness [Unknown]
  - Swelling face [Unknown]
  - Erythema [Unknown]
  - Swelling [Unknown]
